FAERS Safety Report 15990909 (Version 1)
Quarter: 2019Q1

REPORT INFORMATION
  Report Type: Spontaneous
  Country: CA (occurrence: CA)
  Receive Date: 20190221
  Receipt Date: 20190221
  Transmission Date: 20190418
  Serious: Yes (Hospitalization, Disabling, Other)
  Sender: FDA-Public Use
  Company Number: CA-PFIZER INC-2785112

PATIENT
  Age: 42 Year
  Sex: Female
  Weight: 72 kg

DRUGS (16)
  1. PANTOPRAZOLE [Concomitant]
     Active Substance: PANTOPRAZOLE
     Dosage: 80 MG, UNK
  2. CARBOPLATIN. [Suspect]
     Active Substance: CARBOPLATIN
     Dosage: 840 MG, EVERY 3 WEEKS
     Route: 042
  3. AVASTIN [Suspect]
     Active Substance: BEVACIZUMAB
     Dosage: 1050 MG, EVERY 3 WEEKS
     Route: 042
  4. DOCETAXEL. [Suspect]
     Active Substance: DOCETAXEL
     Dosage: 129 MG, EVERY 3 WEEKS
     Route: 042
  5. AVASTIN [Suspect]
     Active Substance: BEVACIZUMAB
     Indication: HER-2 POSITIVE BREAST CANCER
     Dosage: 1050 MG, WEEKLY
     Route: 042
  6. AVASTIN [Suspect]
     Active Substance: BEVACIZUMAB
     Dosage: 1050 MG, EVERY 3 WEEKS
     Route: 042
  7. AMLODIPINE [Concomitant]
     Active Substance: AMLODIPINE BESYLATE
     Dosage: 10 MG, UNK
  8. CARBOPLATIN. [Suspect]
     Active Substance: CARBOPLATIN
     Dosage: 840 MG, EVERY 3 WEEKS
     Route: 042
  9. HERCEPTIN [Suspect]
     Active Substance: TRASTUZUMAB
     Dosage: 2 MG/KG, WEEKLY
     Route: 042
  10. HERCEPTIN [Suspect]
     Active Substance: TRASTUZUMAB
     Dosage: 420 MG, WEEKLY
     Route: 042
  11. HERCEPTIN [Suspect]
     Active Substance: TRASTUZUMAB
     Indication: HER-2 POSITIVE BREAST CANCER
     Dosage: 2 MG/KG, WEEKLY
     Route: 042
  12. HERCEPTIN [Suspect]
     Active Substance: TRASTUZUMAB
     Dosage: 420 MG, EVERY 3 WEEKS
     Route: 042
  13. HERCEPTIN [Suspect]
     Active Substance: TRASTUZUMAB
     Dosage: 420 MG, EVERY 3 WEEKS
     Route: 042
  14. HYDROCHLOROTHIAZIDE. [Concomitant]
     Active Substance: HYDROCHLOROTHIAZIDE
     Dosage: 25 MG, UNK
  15. CARBOPLATIN. [Suspect]
     Active Substance: CARBOPLATIN
     Indication: HER-2 POSITIVE BREAST CANCER
     Dosage: 840 MG, WEEKLY
     Route: 042
  16. DOCETAXEL. [Suspect]
     Active Substance: DOCETAXEL
     Indication: HER-2 POSITIVE BREAST CANCER
     Dosage: 129 MG, WEEKLY
     Route: 042

REACTIONS (2)
  - Febrile neutropenia [Recovered/Resolved]
  - Encephalopathy [Recovered/Resolved]
